FAERS Safety Report 15674521 (Version 1)
Quarter: 2018Q4

REPORT INFORMATION
  Report Type: Spontaneous
  Country: BE (occurrence: BE)
  Receive Date: 20181130
  Receipt Date: 20181130
  Transmission Date: 20190205
  Serious: Yes (Other)
  Sender: FDA-Public Use
  Company Number: BE-AUROBINDO-AUR-APL-2018-057428

PATIENT
  Age: 35 Year
  Sex: Female

DRUGS (4)
  1. SODIUM HYALURONATE [Concomitant]
     Active Substance: HYALURONATE SODIUM
     Indication: DRY EYE
     Dosage: UNK
     Route: 065
     Dates: start: 20140121, end: 20140331
  2. PANTOPRAZOLE [Suspect]
     Active Substance: PANTOPRAZOLE
     Indication: OESOPHAGITIS
     Dosage: UNK
     Route: 065
     Dates: start: 20140530
  3. YASMINELLE [Suspect]
     Active Substance: DROSPIRENONE
     Indication: ACNE
     Dosage: UNK
     Route: 065
     Dates: start: 201311
  4. GILENYA [Suspect]
     Active Substance: FINGOLIMOD HYDROCHLORIDE
     Indication: MULTIPLE SCLEROSIS
     Dosage: 0.5 MILLIGRAM, DAILY
     Route: 048
     Dates: start: 20130107

REACTIONS (31)
  - Decreased appetite [Unknown]
  - Nausea [Unknown]
  - Hyperaesthesia [Recovered/Resolved]
  - Skin lesion [Recovered/Resolved]
  - Tachycardia [Unknown]
  - Anxiety disorder [Unknown]
  - Oesophagitis [Unknown]
  - Dermatosis [Recovered/Resolved]
  - Sleep disorder [Unknown]
  - Erythema [Recovered/Resolved]
  - Eye haemorrhage [Unknown]
  - Parosmia [Unknown]
  - Hyperventilation [Unknown]
  - Lymphocyte count decreased [Unknown]
  - White blood cell count decreased [Unknown]
  - Constipation [Unknown]
  - Malaise [Unknown]
  - Blister [Recovered/Resolved]
  - Fibroma [Unknown]
  - Hypoaesthesia [Unknown]
  - Dermatitis bullous [Recovered/Resolved]
  - Peripheral venous disease [Unknown]
  - Pain [Recovered/Resolved]
  - Pruritus [Recovered/Resolved]
  - Irritable bowel syndrome [Unknown]
  - Vision blurred [Unknown]
  - Acne [Not Recovered/Not Resolved]
  - Burning sensation [Recovered/Resolved]
  - Fatigue [Unknown]
  - Lymphopenia [Unknown]
  - Night sweats [Unknown]

NARRATIVE: CASE EVENT DATE: 20130621
